FAERS Safety Report 5518284-5 (Version None)
Quarter: 2007Q4

REPORT INFORMATION
  Report Type: 
  Country: None (occurrence: None)
  Receive Date: 20071115
  Receipt Date: 20071107
  Transmission Date: 20080405
  Serious: Yes (Other)
  Sender: FDA-Public Use
  Company Number: D0054818A

PATIENT
  Age: 71 Year
  Sex: Female
  Weight: 115 kg

DRUGS (8)
  1. ELONTRIL [Suspect]
     Indication: DEPRESSION
     Dosage: 150MG PER DAY
     Route: 048
     Dates: start: 20070101
  2. RISPERDAL [Concomitant]
     Dosage: 1MG PER DAY
     Route: 048
  3. BUSPIRONE HCL [Concomitant]
     Dosage: 20MG PER DAY
     Route: 048
  4. VALPROATE SODIUM [Concomitant]
     Indication: DEPRESSION
     Dosage: 300MG PER DAY
     Route: 048
  5. AMITRIPTYLINE HCL [Concomitant]
     Dosage: 6DROP PER DAY
     Route: 048
  6. VERAPAMIL [Concomitant]
     Dosage: 120MG TWICE PER DAY
     Route: 048
  7. SIOFOR [Concomitant]
     Dosage: 850MG TWICE PER DAY
     Route: 048
  8. RAMIPRIL [Concomitant]
     Dosage: 2.5MG PER DAY
     Route: 048

REACTIONS (7)
  - DYSKINESIA [None]
  - GAIT DISTURBANCE [None]
  - MASKED FACIES [None]
  - MUSCLE RIGIDITY [None]
  - MUSCLE SPASMS [None]
  - PARKINSONISM [None]
  - POLYDIPSIA [None]
